FAERS Safety Report 10106009 (Version 2)
Quarter: 2014Q3

REPORT INFORMATION
  Report Type: Other
  Country: US (occurrence: US)
  Receive Date: 20140424
  Receipt Date: 20140722
  Transmission Date: 20150326
  Serious: Yes (Hospitalization, Other)
  Sender: FDA-Public Use
  Company Number: US-GSKPPD-2014GSK002042

PATIENT
  Age: 39 Year
  Sex: Male

DRUGS (7)
  1. AMIODARONE [Concomitant]
     Active Substance: AMIODARONE
     Dates: start: 200903, end: 200903
  2. PLAVIX [Concomitant]
     Active Substance: CLOPIDOGREL BISULFATE
  3. AVANDAMET [Suspect]
     Active Substance: METFORMIN HYDROCHLORIDE\ROSIGLITAZONE MALEATE
     Indication: DIABETES MELLITUS
     Dosage: 4/1000 MG
     Route: 048
     Dates: start: 2007
  4. AVANDIA [Suspect]
     Active Substance: ROSIGLITAZONE MALEATE
     Indication: DIABETES MELLITUS
     Route: 048
     Dates: start: 2007
  5. COREG [Concomitant]
     Active Substance: CARVEDILOL
  6. ECOTRIN [Concomitant]
     Active Substance: ASPIRIN
  7. TOPROL XL [Concomitant]
     Active Substance: METOPROLOL SUCCINATE

REACTIONS (1)
  - Myocardial infarction [Recovered/Resolved]

NARRATIVE: CASE EVENT DATE: 20060128
